FAERS Safety Report 9164659 (Version 1)
Quarter: 2013Q1

REPORT INFORMATION
  Report Type: Spontaneous
  Country: AT (occurrence: None)
  Receive Date: 20130226
  Receipt Date: 20130226
  Transmission Date: 20140127
  Serious: Yes (Life-Threatening, Hospitalization, Other)
  Sender: FDA-Public Use
  Company Number: 2013AP003180

PATIENT
  Age: 65 Year
  Sex: Male

DRUGS (7)
  1. METFORMIN (METFORMIN) [Suspect]
     Indication: TYPE 2 DIABETES MELLITUS
  2. TRANDOLAPRIL [Suspect]
     Indication: PRODUCT USED FOR UNKNOWN INDICATION
  3. SPIRONOLACTONE (SPIRONOLACTONE) [Suspect]
     Indication: PRODUCT USED FOR UNKNOWN INDICATION
  4. INSULIN [Concomitant]
  5. ATENOLOL [Concomitant]
  6. FUROSEMIDE [Concomitant]
  7. WARFARIN [Concomitant]

REACTIONS (9)
  - Lactic acidosis [None]
  - Hyperkalaemia [None]
  - Cardio-respiratory arrest [None]
  - Nodal rhythm [None]
  - Hypothermia [None]
  - Hypoglycaemia [None]
  - Anaemia [None]
  - Coagulopathy [None]
  - Renal failure acute [None]
